FAERS Safety Report 7739618-7 (Version None)
Quarter: 2011Q3

REPORT INFORMATION
  Report Type: 
  Country: None (occurrence: None)
  Receive Date: 20110909
  Receipt Date: 20110830
  Transmission Date: 20111222
  Serious: Yes (Death, Other)
  Sender: FDA-Public Use
  Company Number: US-MYLANLABS-2011S1015127

PATIENT
  Age: 0 Year
  Sex: Male

DRUGS (1)
  1. FENTANYL-100 [Suspect]
     Route: 062
     Dates: start: 20110101, end: 20110101

REACTIONS (2)
  - RESPIRATORY ARREST [None]
  - ACCIDENTAL EXPOSURE [None]
